FAERS Safety Report 15170818 (Version 1)
Quarter: 2018Q3

REPORT INFORMATION
  Report Type: Spontaneous
  Country: US (occurrence: US)
  Receive Date: 20180720
  Receipt Date: 20180720
  Transmission Date: 20181010
  Serious: Yes (Hospitalization, Other)
  Sender: FDA-Public Use
  Company Number: US-ELI_LILLY_AND_COMPANY-US201807005082

PATIENT
  Sex: Female

DRUGS (1)
  1. HUMULIN R U?500 [Suspect]
     Active Substance: INSULIN HUMAN
     Indication: PRODUCT USED FOR UNKNOWN INDICATION
     Dosage: UNK, PRN
     Route: 065
     Dates: start: 2015

REACTIONS (26)
  - Non-Hodgkin^s lymphoma [Unknown]
  - Dysphonia [Unknown]
  - Hypertension [Unknown]
  - Angiopathy [Unknown]
  - Influenza [Unknown]
  - Abdominal pain upper [Unknown]
  - Blood glucose increased [Unknown]
  - Confusional state [Unknown]
  - Dizziness [Unknown]
  - Thyroid mass [Unknown]
  - Oropharyngeal pain [Unknown]
  - Blood glucose decreased [Unknown]
  - Fall [Unknown]
  - Heart rate increased [Unknown]
  - Limb discomfort [Unknown]
  - Neuropathy peripheral [Unknown]
  - Chest discomfort [Unknown]
  - Hepatic steatosis [Unknown]
  - Cerebral disorder [Unknown]
  - Fungal skin infection [Unknown]
  - Dizziness [Recovered/Resolved]
  - Extrasystoles [Unknown]
  - Peripheral swelling [Unknown]
  - Muscle spasms [Unknown]
  - Gastritis [Unknown]
  - Cellulitis [Recovered/Resolved]

NARRATIVE: CASE EVENT DATE: 2017
